FAERS Safety Report 7409658-6 (Version None)
Quarter: 2011Q2

REPORT INFORMATION
  Report Type: 
  Country: None (occurrence: None)
  Receive Date: 20110407
  Receipt Date: 20110407
  Transmission Date: 20111010
  Serious: No
  Sender: FDA-Public Use
  Company Number: None

PATIENT

DRUGS (3)
  1. ALFENTANIL [Suspect]
  2. ALFENTANIL [Suspect]
     Indication: ANAESTHESIA
     Dosage: 1000 MCG ONCE IV
     Route: 042
     Dates: start: 20110330, end: 20110330
  3. ALFENTANIL [Suspect]
     Indication: ANAESTHESIA
     Dosage: 1000 MCG ONCE IV
     Route: 042
     Dates: start: 20110404, end: 20110404

REACTIONS (2)
  - DRUG INEFFECTIVE [None]
  - PRODUCT QUALITY ISSUE [None]
